FAERS Safety Report 8426435-8 (Version None)
Quarter: 2012Q2

REPORT INFORMATION
  Report Type: 
  Country: None (occurrence: None)
  Receive Date: 20120611
  Receipt Date: 20120607
  Transmission Date: 20120825
  Serious: Yes (Other)
  Sender: FDA-Public Use
  Company Number: JP-PFIZER INC-2012136774

PATIENT
  Age: 65 Year

DRUGS (1)
  1. SUTENT [Suspect]
     Dosage: 50 MG PER DAY
     Route: 048

REACTIONS (2)
  - MUCOUS MEMBRANE DISORDER [None]
  - PLATELET COUNT DECREASED [None]
